FAERS Safety Report 10531459 (Version 5)
Quarter: 2015Q2

REPORT INFORMATION
  Report Type: Report from Study
  Country: US (occurrence: US)
  Receive Date: 20141021
  Receipt Date: 20150422
  Transmission Date: 20150821
  Serious: Yes (Hospitalization, Other)
  Sender: FDA-Public Use
  Company Number: US-ALEXION-A201404007

PATIENT

DRUGS (1)
  1. SOLIRIS [Suspect]
     Active Substance: ECULIZUMAB
     Indication: HAEMOLYTIC URAEMIC SYNDROME
     Dosage: UNK
     Route: 042

REACTIONS (7)
  - Pruritus [Recovered/Resolved]
  - Urinary tract infection [Recovered/Resolved]
  - Hypertensive crisis [Recovered/Resolved]
  - Axillary mass [Recovered/Resolved]
  - Axillary mass [Recovered/Resolved]
  - Pruritus [Recovered/Resolved]
  - Axillary mass [Recovered/Resolved]

NARRATIVE: CASE EVENT DATE: 20141016
